FAERS Safety Report 20148475 (Version 3)
Quarter: 2022Q1

REPORT INFORMATION
  Report Type: Spontaneous
  Country: PL (occurrence: PL)
  Receive Date: 20211204
  Receipt Date: 20220110
  Transmission Date: 20220423
  Serious: Yes (Other)
  Sender: FDA-Public Use
  Company Number: PL-SUN PHARMACEUTICAL INDUSTRIES LTD-2021RR-318199

PATIENT
  Age: 47 Year
  Sex: Female

DRUGS (23)
  1. ARIPIPRAZOLE [Suspect]
     Active Substance: ARIPIPRAZOLE
     Indication: Psychotic symptom
     Dosage: 10 MILLIGRAM, ONCE A DAY
     Route: 065
     Dates: start: 20201120
  2. OLANZAPINE [Suspect]
     Active Substance: OLANZAPINE
     Indication: Product used for unknown indication
     Dosage: 5 MILLIGRAM, ONCE A DAY
     Route: 065
     Dates: start: 20211023
  3. PREGABALIN [Suspect]
     Active Substance: PREGABALIN
     Indication: Anxiety
     Dosage: 75 MILLIGRAM, UNK
     Route: 065
  4. PROPRANOLOL [Suspect]
     Active Substance: PROPRANOLOL HYDROCHLORIDE
     Indication: Product used for unknown indication
     Dosage: UNK
     Route: 065
  5. RISPERIDONE [Suspect]
     Active Substance: RISPERIDONE
     Indication: Product used for unknown indication
     Dosage: 6 MILLIGRAM, ONCE A DAY
     Route: 065
  6. RISPERIDONE [Suspect]
     Active Substance: RISPERIDONE
     Indication: Psychomotor retardation
     Dosage: 5 MILLIGRAM, ONCE A DAY
     Route: 065
  7. RISPERIDONE [Suspect]
     Active Substance: RISPERIDONE
     Dosage: 2 MILLIGRAM, ONCE A DAY
     Route: 065
  8. SERTRALINE [Suspect]
     Active Substance: SERTRALINE HYDROCHLORIDE
     Indication: Product used for unknown indication
     Dosage: 150 MILLIGRAM, ONCE A DAY
     Route: 065
  9. SERTRALINE [Suspect]
     Active Substance: SERTRALINE HYDROCHLORIDE
     Indication: Depression
     Dosage: 100 MILLIGRAM, ONCE A DAY
     Route: 065
  10. SERTRALINE [Suspect]
     Active Substance: SERTRALINE HYDROCHLORIDE
     Indication: Anxiety
     Dosage: 50 MILLIGRAM, ONCE A DAY
     Route: 065
  11. SERTRALINE [Suspect]
     Active Substance: SERTRALINE HYDROCHLORIDE
     Dosage: UNK
     Route: 065
  12. LURASIDONE [Suspect]
     Active Substance: LURASIDONE
     Indication: Schizophrenia
     Dosage: 37.5 MILLIGRAM, UNK
     Route: 065
  13. LURASIDONE [Suspect]
     Active Substance: LURASIDONE
     Dosage: 38 UNK
     Route: 065
  14. BIPERIDEN [Suspect]
     Active Substance: BIPERIDEN
     Indication: Extrapyramidal disorder
     Dosage: 6 MILLIGRAM, ONCE A DAY
     Route: 048
  15. DIAZEPAM [Suspect]
     Active Substance: DIAZEPAM
     Indication: Product used for unknown indication
     Dosage: 5 MILLIGRAM
     Route: 065
  16. DIAZEPAM [Suspect]
     Active Substance: DIAZEPAM
     Dosage: 5 UNK
     Route: 065
  17. HALOPERIDOL [Suspect]
     Active Substance: HALOPERIDOL
     Indication: Product used for unknown indication
     Dosage: UNK
     Route: 048
  18. HALOPERIDOL [Suspect]
     Active Substance: HALOPERIDOL
     Indication: Abnormal behaviour
  19. HALOPERIDOL [Suspect]
     Active Substance: HALOPERIDOL
     Indication: Abnormal behaviour
     Dosage: UNK
     Route: 030
  20. HALOPERIDOL [Suspect]
     Active Substance: HALOPERIDOL
     Dosage: 1 DOSAGE FORM, ONCE A DAY
     Route: 030
  21. LAMOTRIGINE [Suspect]
     Active Substance: LAMOTRIGINE
     Indication: Mood swings
     Dosage: 50 MILLIGRAM, ONCE A DAY
     Route: 065
     Dates: start: 20200616
  22. LAMOTRIGINE [Suspect]
     Active Substance: LAMOTRIGINE
     Dosage: 100 MILLIGRAM, ONCE A DAY
     Route: 065
  23. ETHAMSYLATE [Concomitant]
     Active Substance: ETHAMSYLATE
     Indication: Genital haemorrhage
     Dosage: UNK
     Route: 065

REACTIONS (17)
  - Hyperprolactinaemia [Unknown]
  - Cognitive disorder [Unknown]
  - Drug ineffective [Unknown]
  - Urinary incontinence [Recovered/Resolved]
  - Dizziness [Unknown]
  - Weight increased [Unknown]
  - Hyperhidrosis [Unknown]
  - Psychomotor retardation [Unknown]
  - Flatulence [Unknown]
  - Distractibility [Unknown]
  - Negative symptoms in schizophrenia [Unknown]
  - Anxiety [Unknown]
  - Mood swings [Unknown]
  - Constipation [Unknown]
  - Psychotic symptom [Recovering/Resolving]
  - Pain [Unknown]
  - Somnolence [Unknown]
